FAERS Safety Report 6942926-0 (Version None)
Quarter: 2010Q3

REPORT INFORMATION
  Report Type: 
  Country: None (occurrence: None)
  Receive Date: 20100825
  Receipt Date: 20100825
  Transmission Date: 20110219
  Serious: Yes (Hospitalization)
  Sender: FDA-Public Use
  Company Number: None

PATIENT
  Sex: Female
  Weight: 15 kg

DRUGS (2)
  1. IBUPROFEN [Suspect]
     Indication: CLAVICLE FRACTURE
     Dosage: PRN PO    2 WKS. PRIOR TO ADMISSION
     Route: 048
  2. IBUPROFEN [Suspect]
     Indication: PYREXIA
     Dosage: PRN PO    2 WKS. PRIOR TO ADMISSION
     Route: 048

REACTIONS (20)
  - ANAL ULCER [None]
  - BLISTER [None]
  - CONJUNCTIVAL SCAR [None]
  - DECREASED ACTIVITY [None]
  - DIARRHOEA [None]
  - DYSURIA [None]
  - HYPOPHAGIA [None]
  - LIP EXFOLIATION [None]
  - LIP SWELLING [None]
  - NIKOLSKY'S SIGN [None]
  - ORAL MUCOSAL EXFOLIATION [None]
  - PYREXIA [None]
  - RASH [None]
  - RASH ERYTHEMATOUS [None]
  - RASH MACULAR [None]
  - SCAB [None]
  - SECRETION DISCHARGE [None]
  - SKIN EXFOLIATION [None]
  - VOMITING [None]
  - VULVOVAGINAL ULCERATION [None]
